FAERS Safety Report 18479575 (Version 1)
Quarter: 2020Q4

REPORT INFORMATION
  Report Type: Spontaneous
  Country: US (occurrence: US)
  Receive Date: 20201106
  Receipt Date: 20201106
  Transmission Date: 20210114
  Serious: Yes (Death)
  Sender: FDA-Public Use
  Company Number: None

PATIENT
  Age: 60 Year
  Sex: Male

DRUGS (8)
  1. TACROLIMUS. [Suspect]
     Active Substance: TACROLIMUS
     Indication: RENAL TRANSPLANT
     Route: 048
     Dates: start: 20180804, end: 20201016
  2. XIFAXAN [Concomitant]
     Active Substance: RIFAXIMIN
     Dates: start: 20200721
  3. WARFARIN [Concomitant]
     Active Substance: WARFARIN
     Dates: start: 20200514
  4. LACTULOSE. [Concomitant]
     Active Substance: LACTULOSE
     Dates: start: 20190331
  5. SPIRONOLACTONE. [Concomitant]
     Active Substance: SPIRONOLACTONE
     Dates: start: 20200526
  6. MYFORTIC [Concomitant]
     Active Substance: MYCOPHENOLATE SODIUM
     Dates: start: 20180804
  7. RETACRIT [Concomitant]
     Active Substance: EPOETIN ALFA-EPBX
     Dates: start: 20200724
  8. FUROSEMIDE. [Concomitant]
     Active Substance: FUROSEMIDE
     Dates: start: 20200607

REACTIONS (2)
  - Pneumonia [None]
  - Multiple organ dysfunction syndrome [None]

NARRATIVE: CASE EVENT DATE: 20201016
